FAERS Safety Report 10237134 (Version 1)
Quarter: 2014Q1

REPORT INFORMATION
  Report Type: Spontaneous
  Country: US (occurrence: None)
  Receive Date: 20140306
  Receipt Date: 20140306
  Transmission Date: 20141002
  Serious: Yes (Other)
  Sender: FDA-Public Use
  Company Number: 163-21880-12123253

PATIENT
  Age: 50 Year
  Sex: Male
  Weight: 78.02 kg

DRUGS (12)
  1. REVLIMID [Suspect]
     Indication: PLASMA CELL MYELOMA
     Dosage: 25 MG, 14 IN 14 D, PO
     Route: 048
     Dates: start: 20121203
  2. COUMADIN (WARFARIN SODIUM) (TABLETS) [Concomitant]
  3. ACYCLOVIR (ACICLOVIR) (TABLETS) [Concomitant]
  4. AMOXICILLIN (AMOXICILLIN) (TABLETS) [Concomitant]
  5. ASPIRIN (ACETYLSALICYLIC ACID) (CHEWABLE TABLET) [Concomitant]
  6. CALCIUM CITRATE-VITAMIN (CALCIUM CITRATE) (UNKNOWN) [Concomitant]
  7. COLACE (DOCUSATE SODIUM) (CAPSULES) [Concomitant]
  8. HYDROXYZINE HCL (HYDROXYZINE HYDROCHLORIDE) (UNKNOWN) [Concomitant]
  9. IBUPROFEN (IBUPROFEN) (CAPSULES) [Concomitant]
  10. LIPITOR (ATORVASTATIN) (TABLETS) [Concomitant]
  11. LORAZEPAM (LORAZEPAM) (TABLETS) [Concomitant]
  12. VELCADE (BORTEZOMIB) (UNKNOWN) [Concomitant]

REACTIONS (2)
  - Prothrombin time abnormal [None]
  - International normalised ratio abnormal [None]
